FAERS Safety Report 6402013-7 (Version None)
Quarter: 2009Q4

REPORT INFORMATION
  Report Type: 
  Country: None (occurrence: None)
  Receive Date: 20091015
  Receipt Date: 20090723
  Transmission Date: 20100525
  Serious: Yes (Death)
  Sender: FDA-Public Use
  Company Number: JP-ROCHE-654523

PATIENT
  Age: 53 Year
  Sex: Male

DRUGS (10)
  1. VALGANCICLOVIR HCL [Suspect]
     Indication: DRUG USE FOR UNKNOWN INDICATION
     Route: 065
     Dates: start: 20070605, end: 20070816
  2. VALGANCICLOVIR HCL [Suspect]
     Route: 065
     Dates: start: 20070817, end: 20080312
  3. AMPHOTERICIN B [Suspect]
     Indication: DRUG USE FOR UNKNOWN INDICATION
     Route: 065
  4. AZITHROMYCIN [Concomitant]
     Dosage: DRUG-AZITHROMYCIN HYDRATE
  5. LOPINAVIR AND RITONAVIR [Concomitant]
  6. EMTRICITABINE/TENOFOVIR [Concomitant]
  7. RITONAVIR [Concomitant]
  8. ATAZANAVIR [Concomitant]
     Dosage: DRUG-ATAZANAVIR SULFATE
  9. EFAVIRENZ [Concomitant]
  10. FOSFLUCONAZOLE [Concomitant]

REACTIONS (3)
  - ELECTROLYTE IMBALANCE [None]
  - LIVER DISORDER [None]
  - MENINGITIS CRYPTOCOCCAL [None]
